FAERS Safety Report 11269688 (Version 7)
Quarter: 2016Q2

REPORT INFORMATION
  Report Type: Report from Study
  Country: CA (occurrence: CA)
  Receive Date: 20150714
  Receipt Date: 20160512
  Transmission Date: 20160815
  Serious: Yes (Death, Hospitalization, Other)
  Sender: FDA-Public Use
  Company Number: PHHY2014CA118233

PATIENT
  Age: 66 Year
  Sex: Female

DRUGS (7)
  1. AMLODIPINE [Concomitant]
     Active Substance: AMLODIPINE BESYLATE
     Indication: PRODUCT USED FOR UNKNOWN INDICATION
     Route: 065
  2. KETOCONAZOL [Concomitant]
     Active Substance: KETOCONAZOLE
     Indication: PRODUCT USED FOR UNKNOWN INDICATION
     Route: 065
  3. WATER PILLS [Concomitant]
     Active Substance: UNSPECIFIED INGREDIENT
     Indication: PRODUCT USED FOR UNKNOWN INDICATION
     Route: 065
  4. SANDOSTATIN LAR DEPOT [Suspect]
     Active Substance: OCTREOTIDE ACETATE
     Indication: CUSHING^S SYNDROME
  5. BISOPROLOL [Concomitant]
     Active Substance: BISOPROLOL
     Indication: PRODUCT USED FOR UNKNOWN INDICATION
     Route: 065
  6. SANDOSTATIN LAR DEPOT [Suspect]
     Active Substance: OCTREOTIDE ACETATE
     Indication: CARCINOID TUMOUR PULMONARY
     Dosage: 30 MG, QMO (EVERY 4 WEEKS)
     Route: 030
     Dates: start: 20140829
  7. CANDESARTAN [Concomitant]
     Active Substance: CANDESARTAN
     Indication: CARDIAC DISORDER
     Route: 065

REACTIONS (14)
  - Pelvic fracture [Unknown]
  - Hypertension [Unknown]
  - Erythema [Recovering/Resolving]
  - Death [Fatal]
  - Nervousness [Unknown]
  - Gait disturbance [Unknown]
  - Tremor [Unknown]
  - Dyspnoea [Unknown]
  - Procedural pain [Unknown]
  - Asthenia [Unknown]
  - Fall [Unknown]
  - Heart rate irregular [Unknown]
  - Product use issue [Unknown]
  - Underdose [Unknown]

NARRATIVE: CASE EVENT DATE: 20140829
